FAERS Safety Report 5132239-4 (Version None)
Quarter: 2006Q4

REPORT INFORMATION
  Report Type: 
  Country: None (occurrence: None)
  Receive Date: 20061017
  Receipt Date: 20061003
  Transmission Date: 20070319
  Serious: No
  Sender: FDA-Public Use
  Company Number: 06H-163-0310571-00

PATIENT
  Age: 29 Year
  Sex: Female

DRUGS (1)
  1. MEPERIDINE HCL [Suspect]
     Indication: PAIN
     Dosage: INTRAVENOUS
     Route: 042
     Dates: start: 20060901, end: 20060901

REACTIONS (2)
  - DEPRESSED LEVEL OF CONSCIOUSNESS [None]
  - SEDATION [None]
